FAERS Safety Report 4401846-6 (Version None)
Quarter: 2004Q3

REPORT INFORMATION
  Report Type: 
  Country: None (occurrence: None)
  Receive Date: 20040714
  Receipt Date: 20040706
  Transmission Date: 20050211
  Serious: Yes (Death)
  Sender: FDA-Public Use
  Company Number: 163-20785-04050510

PATIENT
  Age: 86 Year
  Sex: Male

DRUGS (2)
  1. THALOMID [Suspect]
     Indication: MULTIPLE MYELOMA
     Dosage: 50 MG, QD,ORAL
     Route: 048
     Dates: start: 20031103, end: 20040428
  2. STEROIDS (CORTICOSTEROIDS) [Suspect]

REACTIONS (2)
  - CORONARY ARTERY DISEASE [None]
  - HYPERGLYCAEMIA [None]
